FAERS Safety Report 21906491 (Version 1)
Quarter: 2023Q1

REPORT INFORMATION
  Report Type: Spontaneous
  Country: GB (occurrence: GB)
  Receive Date: 20230125
  Receipt Date: 20230125
  Transmission Date: 20230418
  Serious: Yes (Hospitalization, Other)
  Sender: FDA-Public Use
  Company Number: GB-CPL-003216

PATIENT
  Age: 8 Decade
  Sex: Female

DRUGS (1)
  1. ACYCLOVIR [Suspect]
     Active Substance: ACYCLOVIR
     Indication: Rash
     Route: 048

REACTIONS (4)
  - Neurotoxicity [Unknown]
  - Confusional state [Unknown]
  - Agitation [Unknown]
  - Hallucination [Unknown]
